FAERS Safety Report 6417405-X (Version None)
Quarter: 2009Q4

REPORT INFORMATION
  Report Type: 
  Country: None (occurrence: None)
  Receive Date: 20091026
  Receipt Date: 20091014
  Transmission Date: 20100525
  Serious: Yes (Other)
  Sender: FDA-Public Use
  Company Number: CTI_01069_2009

PATIENT
  Age: 63 Year
  Sex: Male

DRUGS (1)
  1. SPECTRACEF [Suspect]
     Indication: SINUSITIS
     Dosage: (20 FILM COATED TABLETS)
     Dates: start: 20090701, end: 20090717

REACTIONS (1)
  - HEPATITIS [None]
